FAERS Safety Report 8066470-5 (Version None)
Quarter: 2012Q1

REPORT INFORMATION
  Report Type: 
  Country: None (occurrence: None)
  Receive Date: 20120117
  Receipt Date: 20120104
  Transmission Date: 20120608
  Serious: Yes (Hospitalization, Other)
  Sender: FDA-Public Use
  Company Number: 2012P1000754

PATIENT
  Age: 65 Year
  Sex: Female

DRUGS (6)
  1. PHENYTOIN [Suspect]
     Indication: CONVULSION
     Dosage: 300 MG;QD ; 450 MG;QD ; 200 MG;QD
     Dates: start: 20090101, end: 20090101
  2. PHENYTOIN [Suspect]
     Indication: CONVULSION
     Dosage: 300 MG;QD ; 450 MG;QD ; 200 MG;QD
     Dates: start: 20090101, end: 20090101
  3. PHENYTOIN [Suspect]
     Indication: CONVULSION
     Dosage: 300 MG;QD ; 450 MG;QD ; 200 MG;QD
     Dates: start: 20090101, end: 20090101
  4. DEXAMETHASONE [Concomitant]
  5. GEMCITABINE [Concomitant]
  6. SULFAMETHOXAZOLE AND TRIMETHOPRIM [Suspect]
     Indication: URINARY TRACT INFECTION
     Dosage: 800 MG;BID;PRN
     Dates: start: 20090101, end: 20100101

REACTIONS (16)
  - INCONTINENCE [None]
  - APRAXIA [None]
  - WEIGHT BEARING DIFFICULTY [None]
  - COMPLEX PARTIAL SEIZURES [None]
  - MUSCLE SPASTICITY [None]
  - DISORIENTATION [None]
  - CONFUSIONAL STATE [None]
  - ELECTROENCEPHALOGRAM ABNORMAL [None]
  - URINARY RETENTION [None]
  - LETHARGY [None]
  - URINARY TRACT INFECTION [None]
  - VOMITING [None]
  - CLONUS [None]
  - NAUSEA [None]
  - EXTENSOR PLANTAR RESPONSE [None]
  - TOXIC ENCEPHALOPATHY [None]
